FAERS Safety Report 9669502 (Version 2)
Quarter: 2013Q4

REPORT INFORMATION
  Report Type: Spontaneous
  Country: US (occurrence: US)
  Receive Date: 20131105
  Receipt Date: 20131105
  Transmission Date: 20140711
  Serious: Yes (Other)
  Sender: FDA-Public Use
  Company Number: US-009507513-1204USA02549

PATIENT
  Sex: Male

DRUGS (3)
  1. TRUVADA [Suspect]
     Indication: HIV INFECTION
     Route: 048
  2. NORVIR [Suspect]
     Indication: HIV INFECTION
  3. ISENTRESS [Suspect]
     Indication: HIV INFECTION
     Dosage: UNK, UNK
     Route: 048

REACTIONS (1)
  - Osteonecrosis [Unknown]
